APPROVED DRUG PRODUCT: IBUPROFEN
Active Ingredient: IBUPROFEN
Strength: 800MG
Dosage Form/Route: TABLET;ORAL
Application: A071268 | Product #003 | TE Code: AB
Applicant: CONTRACT PHARMACAL CORP
Approved: Jul 1, 1988 | RLD: No | RS: No | Type: RX